FAERS Safety Report 10645994 (Version 1)
Quarter: 2014Q4

REPORT INFORMATION
  Report Type: Spontaneous
  Country: IT (occurrence: IT)
  Receive Date: 20141211
  Receipt Date: 20141211
  Transmission Date: 20150529
  Serious: Yes (Hospitalization)
  Sender: FDA-Public Use
  Company Number: IT-WATSON-2014-26368

PATIENT
  Age: 46 Year
  Sex: Female

DRUGS (1)
  1. TRIAZOLAM (UNKNOWN) [Suspect]
     Active Substance: TRIAZOLAM
     Indication: POLYSUBSTANCE DEPENDENCE
     Dosage: 5 MG, DAILY
     Route: 048
     Dates: start: 20001107, end: 20131107

REACTIONS (1)
  - Drug dependence [Recovering/Resolving]

NARRATIVE: CASE EVENT DATE: 20131107
